APPROVED DRUG PRODUCT: JUNIOR STRENGTH ADVIL
Active Ingredient: IBUPROFEN
Strength: 100MG
Dosage Form/Route: TABLET, CHEWABLE;ORAL
Application: N020944 | Product #002
Applicant: HALEON US HOLDINGS LLC
Approved: Dec 18, 1998 | RLD: No | RS: No | Type: OTC